FAERS Safety Report 6415680-9 (Version None)
Quarter: 2009Q4

REPORT INFORMATION
  Report Type: 
  Country: None (occurrence: None)
  Receive Date: 20091022
  Receipt Date: 20091012
  Transmission Date: 20100525
  Serious: Yes (Hospitalization, Disabling, Other)
  Sender: FDA-Public Use
  Company Number: 2009SP017429

PATIENT
  Age: 48 Year
  Sex: Female
  Weight: 72.5755 kg

DRUGS (3)
  1. NUVARING [Suspect]
     Indication: MENSTRUAL DISORDER
     Dosage: 1 DF; QM; VAG
     Route: 067
     Dates: start: 20050301, end: 20050701
  2. ADVIL [Concomitant]
  3. VIOXX [Concomitant]

REACTIONS (13)
  - ARTERIAL THROMBOSIS [None]
  - HEADACHE [None]
  - HYPERCOAGULATION [None]
  - INTERVERTEBRAL DISC DEGENERATION [None]
  - INTERVERTEBRAL DISC PROTRUSION [None]
  - LEG AMPUTATION [None]
  - MENORRHAGIA [None]
  - NEPHROLITHIASIS [None]
  - PAIN [None]
  - PERIPHERAL ISCHAEMIA [None]
  - PERIPHERAL NERVE INJURY [None]
  - POLYCYSTIC OVARIES [None]
  - SCIATICA [None]
